FAERS Safety Report 17332389 (Version 2)
Quarter: 2020Q1

REPORT INFORMATION
  Report Type: Report from Study
  Country: None (occurrence: US)
  Receive Date: 20200127
  Receipt Date: 20200205
  Transmission Date: 20200409
  Serious: Yes (Hospitalization)
  Sender: FDA-Public Use
  Company Number: US-ABBVIE-20K-163-3248583-00

PATIENT
  Age: 62 Year
  Sex: Female

DRUGS (1)
  1. DUOPA [Suspect]
     Active Substance: CARBIDOPA\LEVODOPA
     Indication: PRODUCT USED FOR UNKNOWN INDICATION
     Route: 050
     Dates: start: 20200109

REACTIONS (2)
  - Pneumothorax [Recovered/Resolved]
  - Abdominal abscess [Recovered/Resolved]

NARRATIVE: CASE EVENT DATE: 20200116
